FAERS Safety Report 9839579 (Version 2)
Quarter: 2014Q1

REPORT INFORMATION
  Report Type: Spontaneous
  Country: US (occurrence: US)
  Receive Date: 20140124
  Receipt Date: 20140217
  Transmission Date: 20141002
  Serious: Yes (Hospitalization, Other)
  Sender: FDA-Public Use
  Company Number: US-BEH-2014040283

PATIENT
  Sex: Female

DRUGS (2)
  1. IVIG [Suspect]
     Indication: IMMUNE THROMBOCYTOPENIC PURPURA
     Dosage: EVERY 2-4 WEEKS
  2. IVIG [Suspect]
     Dosage: EVERY 8-10 DAYS

REACTIONS (6)
  - Vomiting [Unknown]
  - Headache [Unknown]
  - Nausea [Unknown]
  - Adverse drug reaction [Unknown]
  - Drug ineffective [Unknown]
  - Exposure during pregnancy [Unknown]
